FAERS Safety Report 9499807 (Version 1)
Quarter: 2013Q3

REPORT INFORMATION
  Report Type: Spontaneous
  Country: GB (occurrence: None)
  Receive Date: 20130903
  Receipt Date: 20130903
  Transmission Date: 20140515
  Serious: Yes (Life-Threatening)
  Sender: FDA-Public Use
  Company Number: AUR-APL-2013-07017

PATIENT
  Age: 28 Year
  Sex: Female
  Weight: 64 kg

DRUGS (5)
  1. NAPROXEN (NAPROXEN) [Suspect]
     Indication: PRODUCT USED FOR UNKNOWN INDICATION
     Dates: start: 20130523
  2. BETHAMETHASONE VALERATE (BETAMETHASONE VALERATE) [Concomitant]
  3. CO-CODAMOL (PANADEINE CO) [Concomitant]
  4. FEXOFENADINE [Concomitant]
  5. IBUPROFEN (IBUPROFEN) [Concomitant]

REACTIONS (1)
  - Lip swelling [None]
